FAERS Safety Report 13918015 (Version 1)
Quarter: 2017Q3

REPORT INFORMATION
  Report Type: Spontaneous
  Country: US (occurrence: US)
  Receive Date: 20170829
  Receipt Date: 20170829
  Transmission Date: 20171127
  Serious: No
  Sender: FDA-Public Use
  Company Number: US-SA-2016SA227604

PATIENT
  Age: 47 Year
  Sex: Female
  Weight: 99.7 kg

DRUGS (19)
  1. NORMAL SALINE [Concomitant]
     Active Substance: SODIUM CHLORIDE
     Route: 042
     Dates: start: 20161031
  2. MUCINEX [Concomitant]
     Active Substance: GUAIFENESIN
     Dosage: 600-30MG
     Route: 048
     Dates: start: 20121211
  3. VITAMIN D [Concomitant]
     Active Substance: CHOLECALCIFEROL
     Dosage: DOSE:400 UNIT(S)
     Route: 048
     Dates: start: 20140311
  4. SUDAFED [Concomitant]
     Active Substance: PSEUDOEPHEDRINE HYDROCHLORIDE
     Route: 048
     Dates: start: 20121211
  5. XANAX [Concomitant]
     Active Substance: ALPRAZOLAM
     Route: 048
     Dates: start: 20120523
  6. DIPHENHYDRAMINE. [Concomitant]
     Active Substance: DIPHENHYDRAMINE
     Route: 042
  7. EPIPEN [Concomitant]
     Active Substance: EPINEPHRINE
     Dosage: DOSE: 0.3 M
     Dates: start: 20161031
  8. L-M-X [Concomitant]
     Route: 061
     Dates: start: 20161031
  9. CIPRO [Concomitant]
     Active Substance: CIPROFLOXACIN HYDROCHLORIDE
     Route: 048
     Dates: start: 20140311
  10. DIPHENHYDRAMINE. [Concomitant]
     Active Substance: DIPHENHYDRAMINE
     Route: 048
     Dates: start: 20161031
  11. LEVAQUIN [Concomitant]
     Active Substance: LEVOFLOXACIN
  12. KEFLEX [Concomitant]
     Active Substance: CEPHALEXIN
     Route: 048
     Dates: start: 20150226
  13. AMOXICILLIN. [Concomitant]
     Active Substance: AMOXICILLIN
     Route: 048
     Dates: start: 20140414
  14. FABRAZYME [Suspect]
     Active Substance: AGALSIDASE BETA
     Indication: FABRY^S DISEASE
     Dosage: FREQUENCY: EVERY 2-3 DAYS
     Route: 041
  15. CLINDAMYCIN. [Concomitant]
     Active Substance: CLINDAMYCIN
     Route: 048
     Dates: start: 20150226
  16. PANTHENOL/RETINOL/THIAMINE HYDROCHLORIDE/ASCORBIC ACID/ERGOCALCIFEROL/FOLIC ACID/RIBOFLAVIN/NICOTINA [Concomitant]
     Route: 048
     Dates: start: 20140311
  17. ACETAMINOPHEN. [Concomitant]
     Active Substance: ACETAMINOPHEN
     Route: 048
     Dates: start: 20161031
  18. HEPARIN [Concomitant]
     Active Substance: HEPARIN SODIUM
     Dosage: 100 UN/ML
     Route: 042
     Dates: start: 20161031
  19. POTASSIUM [Concomitant]
     Active Substance: POTASSIUM
     Route: 048
     Dates: start: 20140414

REACTIONS (2)
  - Gingivitis [Unknown]
  - Swelling face [Unknown]
